FAERS Safety Report 4365493-7 (Version None)
Quarter: 2004Q2

REPORT INFORMATION
  Report Type: 
  Country: None (occurrence: None)
  Receive Date: 20040520
  Receipt Date: 20040507
  Transmission Date: 20050107
  Serious: Yes (Death)
  Sender: FDA-Public Use
  Company Number: US-JNJFOC-20040501651

PATIENT
  Age: 94 Year
  Sex: Female

DRUGS (12)
  1. INFLIXIMAB LYOPHILIZED POWDER (INFLIXIMAB, RECOMBINANT) [Suspect]
     Indication: RHEUMATOID ARTHRITIS
     Dosage: INTRAVENOUS
     Route: 042
     Dates: start: 20001017, end: 20001017
  2. INFLIXIMAB LYOPHILIZED POWDER (INFLIXIMAB, RECOMBINANT) [Suspect]
     Indication: RHEUMATOID ARTHRITIS
     Dosage: INTRAVENOUS
     Route: 042
     Dates: start: 20031021, end: 20031021
  3. PLAQUENIL [Concomitant]
  4. ACCURETIC [Concomitant]
  5. METHOTREXATE [Concomitant]
  6. FOLIC ACID [Concomitant]
  7. LANOXIN [Concomitant]
  8. PLAVIX [Concomitant]
  9. ASPIRIN [Concomitant]
  10. PREDNISONE [Concomitant]
  11. FOSAMAX [Concomitant]
  12. CALCIUM [Concomitant]

REACTIONS (1)
  - PNEUMONIA [None]
